FAERS Safety Report 9556754 (Version 13)
Quarter: 2023Q4

REPORT INFORMATION
  Report Type: Spontaneous
  Country: US (occurrence: US)
  Receive Date: 20130926
  Receipt Date: 20231204
  Transmission Date: 20240109
  Serious: Yes (Hospitalization, Other)
  Sender: FDA-Public Use
  Company Number: US-PFIZER INC-2013275418

PATIENT
  Age: 72 Year
  Sex: Female
  Weight: 80 kg

DRUGS (6)
  1. XELJANZ [Suspect]
     Active Substance: TOFACITINIB CITRATE
     Indication: Rheumatoid arthritis
     Dosage: 5 MG, 2X/DAY
     Route: 048
     Dates: start: 20130102
  2. XELJANZ [Suspect]
     Active Substance: TOFACITINIB CITRATE
     Indication: Sjogren^s syndrome
     Dosage: 5 MG, 2X/DAY
     Route: 048
     Dates: start: 2016, end: 20190717
  3. XELJANZ [Suspect]
     Active Substance: TOFACITINIB CITRATE
     Dosage: 5 MG, 2X/DAY
     Route: 048
     Dates: start: 20190804
  4. XELJANZ [Suspect]
     Active Substance: TOFACITINIB CITRATE
     Dosage: 5 MG, DAILY (QD 30 TABLETS)
     Route: 048
  5. OXYCODONE [Concomitant]
     Active Substance: OXYCODONE
     Indication: Rheumatoid arthritis
     Dosage: 5 MG, 3X/DAY
     Route: 048
     Dates: start: 2011
  6. LINZESS [Concomitant]
     Active Substance: LINACLOTIDE
     Dosage: 145 UG, DAILY (ONCE IN THE  MORNING)
     Route: 048
     Dates: start: 201606

REACTIONS (24)
  - Fall [Not Recovered/Not Resolved]
  - Back disorder [Unknown]
  - Lower limb fracture [Unknown]
  - Ankle fracture [Unknown]
  - Lower limb fracture [Unknown]
  - Upper limb fracture [Unknown]
  - Pain in extremity [Not Recovered/Not Resolved]
  - Hyperaesthesia [Unknown]
  - Swelling [Unknown]
  - Neuralgia [Not Recovered/Not Resolved]
  - Hypoacusis [Unknown]
  - Malaise [Unknown]
  - Arthralgia [Unknown]
  - Pain in extremity [Unknown]
  - Auditory disorder [Unknown]
  - Fatigue [Not Recovered/Not Resolved]
  - Gastrointestinal disorder [Unknown]
  - Gastrointestinal disorder [Recovered/Resolved]
  - Epigastric discomfort [Unknown]
  - Eructation [Unknown]
  - Abdominal distension [Unknown]
  - Nasopharyngitis [Unknown]
  - Cough [Unknown]
  - Off label use [Unknown]

NARRATIVE: CASE EVENT DATE: 20130101
